FAERS Safety Report 6714574-9 (Version None)
Quarter: 2010Q2

REPORT INFORMATION
  Report Type: 
  Country: None (occurrence: None)
  Receive Date: 20100507
  Receipt Date: 20100426
  Transmission Date: 20101027
  Serious: Yes (Hospitalization)
  Sender: FDA-Public Use
  Company Number: US-BIOGENIDEC-2009BI021024

PATIENT
  Age: 30 Year
  Sex: Female
  Weight: 65 kg

DRUGS (1)
  1. TYSABRI [Suspect]
     Indication: MULTIPLE SCLEROSIS
     Route: 042
     Dates: start: 20081030

REACTIONS (12)
  - ARTHRALGIA [None]
  - ATELECTASIS [None]
  - BONE PAIN [None]
  - CENTRAL NERVOUS SYSTEM LESION [None]
  - DIARRHOEA [None]
  - FATIGUE [None]
  - MEMORY IMPAIRMENT [None]
  - MULTIPLE SCLEROSIS RELAPSE [None]
  - MUSCLE SPASTICITY [None]
  - MYALGIA [None]
  - OROPHARYNGEAL PAIN [None]
  - VOCAL CORD DISORDER [None]
